FAERS Safety Report 19079846 (Version 1)
Quarter: 2021Q2

REPORT INFORMATION
  Report Type: Spontaneous
  Country: EG (occurrence: EG)
  Receive Date: 20210401
  Receipt Date: 20210401
  Transmission Date: 20210717
  Serious: Yes (Other)
  Sender: FDA-Public Use
  Company Number: EG-LUPIN PHARMACEUTICALS INC.-2021-03915

PATIENT
  Age: 48 Year
  Sex: Male

DRUGS (9)
  1. HYDROXYCHLOROQUINE [Suspect]
     Active Substance: HYDROXYCHLOROQUINE
     Dosage: 200 MILLIGRAM, BID, FOR 10 DAYS
     Route: 065
  2. OSELTAMIVIR [Suspect]
     Active Substance: OSELTAMIVIR
     Indication: COVID-19
     Dosage: 75 MILLIGRAM, BID FOR 10 DAYS
     Route: 065
  3. CEFTRIAXONE. [Suspect]
     Active Substance: CEFTRIAXONE
     Indication: COVID-19
     Dosage: 2 GRAM
     Route: 065
  4. BACLOFEN. [Concomitant]
     Active Substance: BACLOFEN
     Indication: PRODUCT USED FOR UNKNOWN INDICATION
     Dosage: UNK
     Route: 065
  5. ASCORBIC ACID. [Concomitant]
     Active Substance: ASCORBIC ACID
     Indication: ANTICOAGULANT THERAPY
     Dosage: UNK
     Route: 065
  6. DOMPERIDONE [Concomitant]
     Active Substance: DOMPERIDONE
     Indication: DRUG THERAPY
     Dosage: UNK
     Route: 065
  7. HYDROXYCHLOROQUINE [Suspect]
     Active Substance: HYDROXYCHLOROQUINE
     Indication: COVID-19
     Dosage: 400 MILLIGRAM, BID FOR ONE DAY
     Route: 065
  8. ZINC. [Concomitant]
     Active Substance: ZINC
     Indication: ANTICOAGULANT THERAPY
     Dosage: UNK
     Route: 065
  9. AZITHROMYCIN ANHYDROUS. [Suspect]
     Active Substance: AZITHROMYCIN ANHYDROUS
     Indication: COVID-19
     Dosage: 500 MILLIGRAM
     Route: 042

REACTIONS (1)
  - Off label use [Unknown]
